APPROVED DRUG PRODUCT: DAPTOMYCIN
Active Ingredient: DAPTOMYCIN
Strength: 500MG/VIAL
Dosage Form/Route: POWDER;INTRAVENOUS
Application: A205037 | Product #001 | TE Code: AP
Applicant: MYLAN LABORATORIES LTD
Approved: Jun 5, 2018 | RLD: No | RS: No | Type: RX